FAERS Safety Report 18672096 (Version 1)
Quarter: 2020Q4

REPORT INFORMATION
  Report Type: Spontaneous
  Country: US (occurrence: US)
  Receive Date: 20201228
  Receipt Date: 20201228
  Transmission Date: 20210114
  Serious: No
  Sender: FDA-Public Use
  Company Number: NVSC2020US334078

PATIENT
  Sex: Female

DRUGS (1)
  1. ALPRAZOLAM SANDOZ [Suspect]
     Active Substance: ALPRAZOLAM
     Indication: ANXIETY
     Dosage: 3-4 TIMES DAILY
     Route: 065

REACTIONS (4)
  - Treatment failure [Unknown]
  - Product physical issue [Unknown]
  - Crying [Unknown]
  - Anxiety [Unknown]
